FAERS Safety Report 4510044-7 (Version None)
Quarter: 2004Q4

REPORT INFORMATION
  Report Type: 
  Country: None (occurrence: None)
  Receive Date: 20041124
  Receipt Date: 20041117
  Transmission Date: 20050328
  Serious: Yes (Hospitalization)
  Sender: FDA-Public Use
  Company Number: PHBS2004JP15635

PATIENT
  Age: 69 Year
  Sex: Male

DRUGS (6)
  1. METOPROLOL [Suspect]
     Indication: PROCEDURAL HYPERTENSION
     Dosage: 60 MG/DAY
     Route: 048
     Dates: start: 20030326, end: 20030331
  2. NITROGLYCERIN [Concomitant]
     Dosage: 72 MG/DAY
  3. CANDESARTAN [Concomitant]
     Dosage: 2 MG/DAY
  4. ASPIRIN [Concomitant]
     Dosage: 100 MG/DAY
  5. TICLOPIDINE HCL [Concomitant]
     Dosage: 200 MG/DAY
  6. CILOSTAZOL [Concomitant]
     Dosage: 200 MG/DAY

REACTIONS (5)
  - ARTERIOSPASM CORONARY [None]
  - BLOOD CREATINE PHOSPHOKINASE INCREASED [None]
  - CHEST PAIN [None]
  - ELECTROCARDIOGRAM ST SEGMENT ELEVATION [None]
  - MYOCARDIAL INFARCTION [None]
